FAERS Safety Report 8024677-7 (Version None)
Quarter: 2012Q1

REPORT INFORMATION
  Report Type: 
  Country: None (occurrence: None)
  Receive Date: 20120103
  Receipt Date: 20111212
  Transmission Date: 20120608
  Serious: Yes (Other)
  Sender: FDA-Public Use
  Company Number: 1147375

PATIENT

DRUGS (3)
  1. FENTANYL [Suspect]
     Dosage: TRANSPLACENTAL
     Route: 064
     Dates: start: 20111212, end: 20111212
  2. (ANESTHETICS, GENERAL) [Suspect]
     Dosage: TRANSPLACENTAL
     Route: 064
     Dates: start: 20111212, end: 20111212
  3. BUPIVACAINE HCL [Suspect]
     Dosage: TRANSPLACENTAL
     Route: 064
     Dates: start: 20111212, end: 20111212

REACTIONS (4)
  - APGAR SCORE LOW [None]
  - UNEVALUABLE EVENT [None]
  - FOETAL EXPOSURE DURING DELIVERY [None]
  - CAESAREAN SECTION [None]
